FAERS Safety Report 7868831-3 (Version None)
Quarter: 2011Q4

REPORT INFORMATION
  Report Type: 
  Country: None (occurrence: None)
  Receive Date: 20111028
  Receipt Date: 20101221
  Transmission Date: 20120403
  Serious: No
  Sender: FDA-Public Use
  Company Number: US-AMGEN-USASP2010010422

PATIENT
  Age: 46 Year
  Sex: Female

DRUGS (2)
  1. ENBREL [Suspect]
     Indication: RHEUMATOID ARTHRITIS
     Dosage: 50 MG, QWK
     Dates: start: 20041201
  2. ENBREL [Suspect]
     Indication: SPONDYLOARTHROPATHY

REACTIONS (7)
  - JOINT STIFFNESS [None]
  - JOINT SWELLING [None]
  - JOINT EFFUSION [None]
  - DEVICE FAILURE [None]
  - ALOPECIA [None]
  - ARTHRALGIA [None]
  - INJECTION SITE URTICARIA [None]
